FAERS Safety Report 4396164-9 (Version None)
Quarter: 2004Q3

REPORT INFORMATION
  Report Type: 
  Country: None (occurrence: None)
  Receive Date: 20040713
  Receipt Date: 20030602
  Transmission Date: 20050211
  Serious: Yes (Death, Other)
  Sender: FDA-Public Use
  Company Number: PHFR2003GB02244

PATIENT
  Age: 26 Year
  Sex: Female

DRUGS (4)
  1. CYCLOSPORINE [Suspect]
     Indication: RENAL TRANSPLANT
     Dosage: 200 MG, BID
     Route: 065
  2. RAPAMUNE [Suspect]
     Indication: IMMUNOSUPPRESSION
     Dosage: 2-8MG/DAY
     Route: 048
  3. MYCOPHENOLATE MOFETIL [Concomitant]
     Dosage: 1.5G/DAY
     Route: 065
  4. AZATHIOPRINE [Concomitant]
     Route: 065

REACTIONS (17)
  - ANAEMIA [None]
  - BIOPSY LUNG ABNORMAL [None]
  - BLOOD CREATININE INCREASED [None]
  - BLOOD LACTATE DEHYDROGENASE INCREASED [None]
  - CYTOMEGALOVIRUS INFECTION [None]
  - DRUG INTERACTION [None]
  - DRUG TOXICITY [None]
  - DYSPNOEA [None]
  - HAEMOGLOBIN DECREASED [None]
  - HAEMOLYTIC URAEMIC SYNDROME [None]
  - HYPOXIA [None]
  - KIDNEY TRANSPLANT REJECTION [None]
  - LUNG INFILTRATION [None]
  - PLATELET COUNT DECREASED [None]
  - PYREXIA [None]
  - RED BLOOD CELL SCHISTOCYTES PRESENT [None]
  - THROMBOTIC MICROANGIOPATHY [None]
